FAERS Safety Report 5778603-1 (Version None)
Quarter: 2008Q2

REPORT INFORMATION
  Report Type: 
  Country: None (occurrence: None)
  Receive Date: 20080618
  Receipt Date: 20080618
  Transmission Date: 20081010
  Serious: Yes (Other)
  Sender: FDA-Public Use
  Company Number: None

PATIENT
  Sex: Male

DRUGS (4)
  1. REVLIMID [Suspect]
     Indication: MANTLE CELL LYMPHOMA
     Dosage: 15MG DAILY 21D/28D PO
     Route: 048
  2. GABAPENTIN [Concomitant]
  3. LEVOTHROID [Concomitant]
  4. LISINOPRIL [Concomitant]

REACTIONS (1)
  - NEUTROPENIA [None]
